FAERS Safety Report 6567147-5 (Version None)
Quarter: 2010Q1

REPORT INFORMATION
  Report Type: 
  Country: None (occurrence: None)
  Receive Date: 20100202
  Receipt Date: 20100122
  Transmission Date: 20100710
  Serious: Yes (Other)
  Sender: FDA-Public Use
  Company Number: US-SANOFI-AVENTIS-2010SA005134

PATIENT
  Age: 62 Year
  Sex: Male

DRUGS (2)
  1. APIDRA [Suspect]
     Indication: TYPE 2 DIABETES MELLITUS
     Dosage: WITH MEALS DOSE:4 UNIT(S)
     Route: 058
     Dates: start: 20060101
  2. OPTICLICK [Suspect]
     Indication: TYPE 2 DIABETES MELLITUS
     Dates: start: 20060101

REACTIONS (2)
  - INFECTION [None]
  - SEPSIS [None]
